FAERS Safety Report 25114157 (Version 4)
Quarter: 2025Q4

REPORT INFORMATION
  Report Type: Report from Study
  Country: EU (occurrence: EU)
  Receive Date: 20250324
  Receipt Date: 20251229
  Transmission Date: 20260117
  Serious: Yes (Hospitalization, Other)
  Sender: NOVARTIS
  Company Number: EU-002147023-NVSC2025IT047482

PATIENT
  Age: 14 Year
  Sex: Male
  Weight: 29 kg

DRUGS (30)
  1. MEKINIST [Suspect]
     Active Substance: TRAMETINIB DIMETHYL SULFOXIDE
     Indication: Glioma
     Dosage: 0.5 MG, QD
     Route: 048
     Dates: start: 20240202
  2. MEKINIST [Suspect]
     Active Substance: TRAMETINIB DIMETHYL SULFOXIDE
     Dosage: 0.375 MG, QD (EQUAL TO 0.018 MG/KG/DAY)
     Route: 048
     Dates: start: 20240820
  3. MEKINIST [Suspect]
     Active Substance: TRAMETINIB DIMETHYL SULFOXIDE
     Dosage: 0.5 MG, QD (EQUAL TO 0.025 MG/KG/DAY)
     Route: 048
     Dates: start: 20240917
  4. MEKINIST [Suspect]
     Active Substance: TRAMETINIB DIMETHYL SULFOXIDE
     Dosage: 15 ML, QD (EQUAL TO 0.75 MG/DAY)
     Route: 048
     Dates: start: 20250226, end: 20250318
  5. MEKINIST [Suspect]
     Active Substance: TRAMETINIB DIMETHYL SULFOXIDE
     Dosage: 14 ML
     Route: 048
  6. MEKINIST [Suspect]
     Active Substance: TRAMETINIB DIMETHYL SULFOXIDE
     Dosage: 7 ML (RESTARTED) 50 PERCENT OF THE TOTAL DOSE
     Route: 048
     Dates: start: 20250506
  7. MEKINIST [Suspect]
     Active Substance: TRAMETINIB DIMETHYL SULFOXIDE
     Dosage: 11 ML, QD (78 PERCENT OF THE TOTAL DOSE)
     Route: 048
     Dates: start: 20250923
  8. MEKINIST [Suspect]
     Active Substance: TRAMETINIB DIMETHYL SULFOXIDE
     Dosage: 13 ML
     Route: 048
     Dates: end: 20251105
  9. MEKINIST [Suspect]
     Active Substance: TRAMETINIB DIMETHYL SULFOXIDE
     Dosage: 8 ML QD AT 50 PERCENT OF THE PREVIOUS DOSE
     Route: 048
     Dates: start: 20251122
  10. MEKINIST [Suspect]
     Active Substance: TRAMETINIB DIMETHYL SULFOXIDE
     Dosage: 12 ML, QD (75 PERCENT OF THE PREVIOUS DOSE)
     Route: 048
     Dates: start: 20251209
  11. LEVETIRACETAM [Concomitant]
     Active Substance: LEVETIRACETAM
     Indication: Product used for unknown indication
     Dosage: UNK UNK, PRN
     Route: 065
  12. LEVETIRACETAM [Concomitant]
     Active Substance: LEVETIRACETAM
     Dosage: 7.5 ML, QD (SYRUP) (2.5 ML AT 10AM AND 5 ML AT 10PM)
     Route: 065
  13. LANSOPRAZOLE [Concomitant]
     Active Substance: LANSOPRAZOLE
     Indication: Product used for unknown indication
     Dosage: 30 MG, QD (AT 8 HR A.M.)
     Route: 065
  14. AMOXICILLIN\CLAVULANIC ACID [Concomitant]
     Active Substance: AMOXICILLIN\CLAVULANIC ACID
     Indication: Product used for unknown indication
     Dosage: 1 G, QD (IN THE EVENING)
     Route: 065
  15. CHOLECALCIFEROL [Concomitant]
     Active Substance: CHOLECALCIFEROL
     Indication: Product used for unknown indication
     Dosage: 1000 UNIT, QD (DROPS)
     Route: 065
  16. CHOLECALCIFEROL [Concomitant]
     Active Substance: CHOLECALCIFEROL
     Dosage: 4 DRP, QD (10000 IU/ML)
     Route: 065
  17. TRAMADOL [Concomitant]
     Active Substance: TRAMADOL
     Indication: Product used for unknown indication
     Dosage: 40 MG, QD
     Route: 065
     Dates: start: 20250212
  18. Prontosan [Concomitant]
     Indication: Product used for unknown indication
     Dosage: CLEANSING OF THE INVOLVED SKIN AREAS WITH APPLICATION OF MOIST PACK WITH LIQUID
     Route: 065
  19. LACTATED RINGERS SOLUTION [Concomitant]
     Active Substance: CALCIUM CHLORIDE\POTASSIUM CHLORIDE\SODIUM CHLORIDE\SODIUM LACTATE
     Indication: Product used for unknown indication
     Dosage: UNK (AS INFUSION THERAPY)
     Route: 042
  20. FENTANYL [Concomitant]
     Active Substance: FENTANYL
     Indication: Sedative therapy
     Dosage: UNK
     Route: 065
  21. PROPOFOL [Concomitant]
     Active Substance: PROPOFOL
     Indication: Sedative therapy
     Dosage: UNK
     Route: 065
  22. VINBLASTINE [Concomitant]
     Active Substance: VINBLASTINE
     Indication: Product used for unknown indication
     Dosage: UNK, QW (CONTINUATION OF CHEMOTHERAPY)
     Route: 065
     Dates: start: 20231017
  23. ESOMEPRAZOLE [Concomitant]
     Active Substance: ESOMEPRAZOLE
     Indication: Product used for unknown indication
     Dosage: UNK (TABLET)
     Route: 065
  24. AUGMENTIN [Concomitant]
     Active Substance: AMOXICILLIN\CLAVULANATE POTASSIUM
     Indication: Product used for unknown indication
     Dosage: 1 DOSAGE FORM, QD (N TABLETS OR SACHETS 1 GR, TABLET PER SACHET EVERY EVENING)
     Route: 065
  25. ACYCLOVIR [Concomitant]
     Active Substance: ACYCLOVIR
     Indication: Product used for unknown indication
     Dosage: UNK
     Route: 065
     Dates: start: 20250212
  26. MUPIROCIN CALCIUM [Concomitant]
     Active Substance: MUPIROCIN CALCIUM
     Indication: Product used for unknown indication
     Dosage: UNK
     Route: 065
     Dates: start: 20250212
  27. BACTRIM [Concomitant]
     Active Substance: SULFAMETHOXAZOLE\TRIMETHOPRIM
     Indication: Prophylaxis
     Dosage: UNK (EVENING)
     Route: 065
  28. CEFTRIAXONE [Concomitant]
     Active Substance: CEFTRIAXONE
     Indication: Evidence based treatment
     Dosage: UNK
     Route: 065
  29. CEFTAZIDIME [Concomitant]
     Active Substance: CEFTAZIDIME
     Indication: Antibiotic therapy
     Dosage: UNK
     Route: 065
  30. AVIBACTAM [Concomitant]
     Active Substance: AVIBACTAM
     Indication: Antibiotic therapy
     Dosage: UNK
     Route: 065

REACTIONS (33)
  - Skin toxicity [Recovered/Resolved with Sequelae]
  - Decubitus ulcer [Unknown]
  - Ulcer haemorrhage [Unknown]
  - Purulent discharge [Unknown]
  - Condition aggravated [Unknown]
  - Sepsis [Unknown]
  - Hypokalaemia [Unknown]
  - Enterovirus infection [Unknown]
  - Hypoalbuminaemia [Unknown]
  - Anaemia [Unknown]
  - Oedema [Recovering/Resolving]
  - Pyrexia [Unknown]
  - Cachexia [Unknown]
  - Urethral haemorrhage [Unknown]
  - Urinary tract infection pseudomonal [Recovered/Resolved]
  - Paronychia [Unknown]
  - Lip dry [Unknown]
  - Mucosal inflammation [Unknown]
  - Gingival bleeding [Unknown]
  - Oedema peripheral [Unknown]
  - Pyrexia [Recovered/Resolved]
  - Pyrexia [Recovered/Resolved]
  - Inflammatory marker increased [Unknown]
  - Nitrite urine [Unknown]
  - Diarrhoea [Unknown]
  - Vomiting [Unknown]
  - Urine output decreased [Recovered/Resolved]
  - Hyperfibrinogenaemia [Unknown]
  - Hyponatraemia [Unknown]
  - Hyperaemia [Unknown]
  - Pain [Unknown]
  - Rash pustular [Recovered/Resolved]
  - Urine abnormality [Unknown]

NARRATIVE: CASE EVENT DATE: 20241101
